FAERS Safety Report 8954798 (Version 2)
Quarter: 2013Q1

REPORT INFORMATION
  Report Type: Spontaneous
  Country: FR (occurrence: FR)
  Receive Date: 20121207
  Receipt Date: 20130111
  Transmission Date: 20140127
  Serious: Yes (Other)
  Sender: FDA-Public Use
  Company Number: FR-ASTRAZENECA-2012SE90413

PATIENT
  Sex: Male
  Weight: 80 kg

DRUGS (5)
  1. XEROQUEL [Suspect]
     Indication: SCHIZOAFFECTIVE DISORDER
     Dosage: DOSE INCREASED FROM 50 MG TO 300 MG PER DAY PROGRESSIVELY
     Route: 048
  2. TERCIAN [Concomitant]
     Route: 048
  3. VALIUM [Concomitant]
     Route: 048
  4. IMOVANE [Concomitant]
     Route: 048
  5. RISPERDAL [Concomitant]
     Indication: SCHIZOAFFECTIVE DISORDER

REACTIONS (5)
  - Disinhibition [Recovered/Resolved]
  - Aggression [Recovered/Resolved]
  - Aggression [Recovered/Resolved]
  - Insomnia [Recovered/Resolved]
  - Persecutory delusion [Recovered/Resolved]
